FAERS Safety Report 14650823 (Version 2)
Quarter: 2018Q2

REPORT INFORMATION
  Report Type: Spontaneous
  Country: DE (occurrence: DE)
  Receive Date: 20180316
  Receipt Date: 20180430
  Transmission Date: 20180711
  Serious: Yes (Other)
  Sender: FDA-Public Use
  Company Number: PHHY2018DE040755

PATIENT
  Age: 34 Year
  Sex: Male

DRUGS (1)
  1. RIAMET [Suspect]
     Active Substance: ARTEMETHER\LUMEFANTRINE
     Indication: MALARIA
     Dosage: UNK
     Route: 065
     Dates: start: 201802

REACTIONS (6)
  - Drug ineffective [Unknown]
  - Treatment failure [Unknown]
  - Asthenia [Unknown]
  - Plasmodium falciparum infection [Unknown]
  - Pyrexia [Unknown]
  - Headache [Unknown]
